FAERS Safety Report 8441976 (Version 2)
Quarter: 2014Q3

REPORT INFORMATION
  Report Type: Spontaneous
  Country: BR (occurrence: BR)
  Receive Date: 20120305
  Receipt Date: 20140731
  Transmission Date: 20150326
  Serious: Yes (Other)
  Sender: FDA-Public Use
  Company Number: BR-PFIZER INC-2012052060

PATIENT
  Age: 56 Year
  Sex: Female
  Weight: 62 kg

DRUGS (6)
  1. CITALOPRAM [Concomitant]
     Active Substance: CITALOPRAM HYDROBROMIDE
     Indication: ANTIDEPRESSANT THERAPY
     Dosage: ONE TABLET AT NIGHT
     Dates: start: 201109
  2. LYRICA [Suspect]
     Active Substance: PREGABALIN
     Indication: NEUROPATHY PERIPHERAL
     Dosage: 75 MG, 2X/DAY
     Route: 048
     Dates: start: 2010
  3. LYRICA [Suspect]
     Active Substance: PREGABALIN
     Indication: NEURALGIA
  4. MACRODANTIN [Concomitant]
     Active Substance: NITROFURANTOIN
     Indication: POLLAKIURIA
     Dosage: ONE TABLET DAILY
     Dates: start: 201108
  5. RIVOTRIL [Suspect]
     Active Substance: CLONAZEPAM
     Dosage: UNK
  6. OLCADIL [Concomitant]
     Active Substance: CLOXAZOLAM
     Indication: SLEEP DISORDER
     Dosage: ONE TABLET DAILY
     Dates: start: 201111

REACTIONS (9)
  - Decreased activity [Not Recovered/Not Resolved]
  - Spinal disorder [Unknown]
  - Hypotonia [Not Recovered/Not Resolved]
  - Tongue movement disturbance [Not Recovered/Not Resolved]
  - Sensory loss [Unknown]
  - Feeling abnormal [Not Recovered/Not Resolved]
  - Myalgia [Unknown]
  - Somnolence [Unknown]
  - Procedural complication [Unknown]

NARRATIVE: CASE EVENT DATE: 2011
